FAERS Safety Report 8867781 (Version 1)
Quarter: 2012Q4

REPORT INFORMATION
  Report Type: 
  Country: US (occurrence: US)
  Receive Date: 20121025
  Receipt Date: 20121025
  Transmission Date: 20130627
  Serious: No
  Sender: FDA-Public Use
  Company Number: US-AMGEN-USASP2012018486

PATIENT
  Sex: Male
  Weight: 97.51 kg

DRUGS (10)
  1. ENBREL [Suspect]
     Indication: PRODUCT USED FOR UNKNOWN INDICATION
     Dosage: 50 mg, qwk
     Route: 058
  2. CITALOPRAM [Concomitant]
     Dosage: 10 mg, UNK
  3. AMIODARONE [Concomitant]
     Dosage: 200 mg, UNK
  4. CLONAZEPAM [Concomitant]
     Dosage: 0.5 mg, UNK
  5. PREDNISONE [Concomitant]
     Dosage: 2.5 mg, UNK
  6. LOVASTATIN [Concomitant]
     Dosage: 20 mg, UNK
  7. ZANTAC [Concomitant]
     Dosage: 150 mg, UNK
  8. NORCO [Concomitant]
     Dosage: UNK
  9. CELEBREX [Concomitant]
     Dosage: 200 mg, UNK
  10. PLAVIX [Concomitant]
     Dosage: 300 mg, UNK

REACTIONS (2)
  - Injection site bruising [Unknown]
  - Headache [Unknown]
